FAERS Safety Report 25054974 (Version 1)
Quarter: 2025Q1

REPORT INFORMATION
  Report Type: Spontaneous
  Country: RU (occurrence: RU)
  Receive Date: 20250308
  Receipt Date: 20250308
  Transmission Date: 20250409
  Serious: Yes (Death)
  Sender: AMGEN
  Company Number: RU-AMGEN-RUSSP2025045577

PATIENT
  Age: 11 Year

DRUGS (4)
  1. BLINATUMOMAB [Suspect]
     Active Substance: BLINATUMOMAB
     Indication: Acute lymphocytic leukaemia recurrent
     Route: 065
  2. TREOSULFAN [Concomitant]
     Active Substance: TREOSULFAN
     Indication: Surgical preconditioning
     Route: 065
  3. FLUDARABINE [Concomitant]
     Active Substance: FLUDARABINE PHOSPHATE
     Indication: Surgical preconditioning
     Route: 065
  4. CYCLOPHOSPHAMIDE [Concomitant]
     Active Substance: CYCLOPHOSPHAMIDE
     Indication: Prophylaxis

REACTIONS (1)
  - Allogenic stem cell transplantation [Fatal]
